FAERS Safety Report 24448705 (Version 1)
Quarter: 2024Q4

REPORT INFORMATION
  Report Type: Spontaneous
  Country: US (occurrence: US)
  Receive Date: 20241017
  Receipt Date: 20241017
  Transmission Date: 20250114
  Serious: No
  Sender: SANDOZ
  Company Number: US-SANDOZ-SDZ2024US086173

PATIENT
  Sex: Male

DRUGS (2)
  1. TIMOLOL MALEATE [Suspect]
     Active Substance: TIMOLOL MALEATE
     Indication: Intraocular pressure test
     Dosage: TIMOLOL MAL GEL FORMING 0.5% 5ML LDP US
     Route: 065
  2. ZIOPTAN [Concomitant]
     Active Substance: TAFLUPROST
     Indication: Product used for unknown indication
     Dosage: ONCE PER DAY
     Route: 065

REACTIONS (2)
  - Ocular discomfort [Unknown]
  - Eye irritation [Unknown]
